FAERS Safety Report 5160835-7 (Version None)
Quarter: 2006Q4

REPORT INFORMATION
  Report Type: 
  Country: None (occurrence: None)
  Receive Date: 20061121
  Receipt Date: 20061114
  Transmission Date: 20070319
  Serious: Yes (Death)
  Sender: FDA-Public Use
  Company Number: 232557

PATIENT
  Age: 78 Year
  Sex: Male

DRUGS (1)
  1. GRTPA(ALTEPLASE) PWDR + SOLVENT,INFUSION SOLN [Suspect]
     Indication: CEREBRAL INFARCTION
     Dosage: 24 MIU, SINGLE, INTRAVENOUS
     Route: 042
     Dates: start: 20061103, end: 20061103

REACTIONS (1)
  - VENTRICULAR FIBRILLATION [None]
